FAERS Safety Report 6591877-2 (Version None)
Quarter: 2010Q1

REPORT INFORMATION
  Report Type: 
  Country: None (occurrence: None)
  Receive Date: 20100221
  Receipt Date: 20090629
  Transmission Date: 20100710
  Serious: No
  Sender: FDA-Public Use
  Company Number: US-ALLERGAN-0909100US

PATIENT
  Age: 32 Year
  Sex: Female

DRUGS (1)
  1. BOTOX [Suspect]
     Indication: HYPERHIDROSIS
     Dosage: 100 UNITS, SINGLE
     Route: 023
     Dates: start: 20090617, end: 20090617

REACTIONS (5)
  - AXILLARY PAIN [None]
  - LOCAL SWELLING [None]
  - MALAISE [None]
  - PYREXIA [None]
  - TENDERNESS [None]
